FAERS Safety Report 8912376 (Version 2)
Quarter: 2014Q2

REPORT INFORMATION
  Report Type: Spontaneous
  Country: US (occurrence: US)
  Receive Date: 20121115
  Receipt Date: 20131018
  Transmission Date: 20141212
  Serious: Yes (Hospitalization)
  Sender: FDA-Public Use
  Company Number: US-PFIZER INC-2012281071

PATIENT
  Age: 12 Year
  Sex: Male
  Weight: 45.5 kg

DRUGS (7)
  1. CHLORAMPHENICOL SODIUM SUCCINATE [Suspect]
     Indication: BRAIN ABSCESS
     Dosage: 1 GRAM EVERY 6 HOURS ( 88 MG/KG/DAY)
     Route: 042
  2. METRONIDAZOLE [Concomitant]
     Indication: BRAIN ABSCESS
     Dosage: 500 MG, 4X/DAY (33 MG/KG/DAY),
     Route: 042
  3. DIVALPROEX [Concomitant]
     Indication: BRAIN ABSCESS
     Dosage: 2 GRAMS AT BEDTIME
     Route: 048
  4. ALBUTEROL [Concomitant]
  5. DIPHENHYDRAMINE [Concomitant]
  6. ACETAMINOPHEN [Concomitant]
  7. OXCARBAZEPINE [Concomitant]

REACTIONS (11)
  - Drug level increased [Unknown]
  - Anaemia [Unknown]
  - Thrombocytopenia [Recovering/Resolving]
  - Reticulocytopenia [Unknown]
  - Metabolic acidosis [Unknown]
  - Neutropenia [Unknown]
  - Visual impairment [Not Recovered/Not Resolved]
  - Neuropathy peripheral [Recovering/Resolving]
  - Grey syndrome neonatal [Unknown]
  - Abdominal distension [Unknown]
  - Lethargy [Unknown]
